FAERS Safety Report 22837294 (Version 2)
Quarter: 2023Q4

REPORT INFORMATION
  Report Type: Spontaneous
  Country: GB (occurrence: GB)
  Receive Date: 20230818
  Receipt Date: 20231002
  Transmission Date: 20240110
  Serious: Yes (Other)
  Sender: FDA-Public Use
  Company Number: GB-Bristol Laboratories Ltd-BLL202307-000089

PATIENT
  Age: 80 Year

DRUGS (3)
  1. CLARITHROMYCIN [Interacting]
     Active Substance: CLARITHROMYCIN
     Indication: Infection
     Dosage: UNK
     Route: 065
  2. SOTALOL [Interacting]
     Active Substance: SOTALOL
     Indication: Supraventricular tachycardia
     Dosage: 40 MILLIGRAM, TID (40MG TABLETS OF SOTALOL HYDROCHLORIDE THREE TIMES A DAY)
     Route: 065
     Dates: start: 1980
  3. SOTALOL [Interacting]
     Active Substance: SOTALOL
     Indication: Arrhythmia
     Dosage: UNK
     Route: 065

REACTIONS (5)
  - Syncope [Unknown]
  - Blood pressure increased [Unknown]
  - Psychiatric symptom [Unknown]
  - Labelled drug-drug interaction medication error [Unknown]
  - Product prescribing error [Unknown]
